FAERS Safety Report 9078621 (Version 1)
Quarter: 2013Q1

REPORT INFORMATION
  Report Type: Spontaneous
  Country: CA (occurrence: CA)
  Receive Date: 20130130
  Receipt Date: 20130130
  Transmission Date: 20140127
  Serious: Yes (Other)
  Sender: FDA-Public Use
  Company Number: CA-JNJFOC-20130113845

PATIENT
  Age: 73 Year
  Sex: Male

DRUGS (15)
  1. REMICADE [Suspect]
     Indication: RHEUMATOID ARTHRITIS
     Route: 042
  2. ETANERCEPT [Suspect]
     Indication: RHEUMATOID ARTHRITIS
     Route: 058
     Dates: start: 20101112
  3. AMITRIPTYLINE HYDROCHLORIDE [Concomitant]
     Route: 065
     Dates: start: 20000615
  4. MELOXICAM [Concomitant]
     Route: 065
     Dates: start: 20050615
  5. SLOW-K [Concomitant]
     Dosage: 3 TABLETS
     Route: 065
     Dates: start: 19900615
  6. HYDROCHLOROTHIAZIDE [Concomitant]
     Route: 065
     Dates: start: 19900615
  7. AZATHIOPRINE [Concomitant]
     Route: 065
     Dates: start: 20080615
  8. GABAPENTIN [Concomitant]
     Route: 065
     Dates: start: 20000615
  9. FLOMAX [Concomitant]
     Route: 065
     Dates: start: 20000615
  10. HYDROMORPHONE HYDROCHLORIDE [Concomitant]
     Route: 065
     Dates: start: 20080615
  11. RABEPRAZOLE [Concomitant]
     Route: 065
     Dates: start: 20080615
  12. TYLENOL ARTHRITIS [Concomitant]
     Route: 065
     Dates: start: 19930615
  13. ASA ENTERIC COATED [Concomitant]
     Route: 065
     Dates: start: 20080615
  14. MULTIVITAMINS [Concomitant]
     Dosage: 1 TABLET
     Route: 065
     Dates: start: 19950615
  15. DOMPERIDONE [Concomitant]
     Route: 065
     Dates: start: 19950615

REACTIONS (1)
  - Squamous cell carcinoma [Recovered/Resolved]
